FAERS Safety Report 19771992 (Version 2)
Quarter: 2021Q3

REPORT INFORMATION
  Report Type: Spontaneous
  Country: US (occurrence: US)
  Receive Date: 20210831
  Receipt Date: 20210831
  Transmission Date: 20211014
  Serious: Yes (Hospitalization, Other)
  Sender: FDA-Public Use
  Company Number: US-PFIZER INC-202101082633

PATIENT
  Age: 59 Year
  Sex: Male
  Weight: 79.37 kg

DRUGS (5)
  1. INLYTA [Suspect]
     Active Substance: AXITINIB
     Indication: RENAL CANCER
     Dosage: 3 MG, 2X/DAY
     Dates: start: 20200818
  2. METOPROLOL TARTRATE. [Concomitant]
     Active Substance: METOPROLOL TARTRATE
     Dosage: UNK
  3. GLIPIZIDE. [Concomitant]
     Active Substance: GLIPIZIDE
     Dosage: UNK
  4. ELIQUIS [Concomitant]
     Active Substance: APIXABAN
     Dosage: UNK
  5. LASIX [Concomitant]
     Active Substance: FUROSEMIDE
     Dosage: UNK

REACTIONS (7)
  - Asthenia [Unknown]
  - Thrombosis [Recovering/Resolving]
  - Fatigue [Unknown]
  - Coronary artery thrombosis [Recovering/Resolving]
  - Post procedural haemorrhage [Unknown]
  - Dyspnoea [Recovering/Resolving]
  - Pulmonary thrombosis [Recovering/Resolving]
